FAERS Safety Report 15949364 (Version 4)
Quarter: 2019Q1

REPORT INFORMATION
  Report Type: Report from Study
  Country: None (occurrence: US)
  Receive Date: 20190212
  Receipt Date: 20190227
  Transmission Date: 20190417
  Serious: Yes (Hospitalization, Other)
  Sender: FDA-Public Use
  Company Number: US-ABBVIE-19S-163-2660203-00

PATIENT
  Age: 69 Year
  Sex: Female
  Weight: 67.19 kg

DRUGS (3)
  1. CREON [Suspect]
     Active Substance: PANCRELIPASE AMYLASE\PANCRELIPASE LIPASE\PANCRELIPASE PROTEASE
     Indication: PANCREATIC FAILURE
     Route: 048
     Dates: start: 201708
  2. CREON [Suspect]
     Active Substance: PANCRELIPASE AMYLASE\PANCRELIPASE LIPASE\PANCRELIPASE PROTEASE
     Dosage: 3 CAPSULES WITH A LARGE MEAL, 2 CAPSULES WITH A LIGHT MEAL, 1 CAPSULE WITH A SNACK
     Route: 048
  3. METFORMIN [Concomitant]
     Active Substance: METFORMIN HYDROCHLORIDE
     Indication: PRODUCT USED FOR UNKNOWN INDICATION

REACTIONS (11)
  - Blood magnesium decreased [Recovered/Resolved]
  - Blood potassium decreased [Recovered/Resolved]
  - Decreased appetite [Recovered/Resolved]
  - Thyroid cancer [Recovered/Resolved]
  - Weight decreased [Recovered/Resolved]
  - Steatorrhoea [Recovered/Resolved]
  - Hypothyroidism [Not Recovered/Not Resolved]
  - Glycosylated haemoglobin increased [Not Recovered/Not Resolved]
  - Blood glucose increased [Not Recovered/Not Resolved]
  - Weight increased [Not Recovered/Not Resolved]
  - Blood glucose increased [Recovered/Resolved]

NARRATIVE: CASE EVENT DATE: 2017
